FAERS Safety Report 14389164 (Version 2)
Quarter: 2018Q3

REPORT INFORMATION
  Report Type: Spontaneous
  Country: US (occurrence: US)
  Receive Date: 20180115
  Receipt Date: 20180726
  Transmission Date: 20181010
  Serious: Yes (Other)
  Sender: FDA-Public Use
  Company Number: US-SA-2017SA235182

PATIENT
  Age: 48 Year
  Sex: Female
  Weight: 88 kg

DRUGS (8)
  1. POTASSIUM [Concomitant]
     Active Substance: POTASSIUM
     Dosage: UNK
     Dates: start: 20150101
  2. TAXOTERE [Suspect]
     Active Substance: DOCETAXEL
     Indication: BREAST CANCER FEMALE
     Dosage: 161 MG, Q3W
     Route: 042
     Dates: start: 20090325, end: 20090325
  3. TAMOXIFEN [Concomitant]
     Active Substance: TAMOXIFEN
  4. PARAPLATIN [Concomitant]
     Active Substance: CARBOPLATIN
  5. AROMASIN [Concomitant]
     Active Substance: EXEMESTANE
  6. HERCEPTIN [Concomitant]
     Active Substance: TRASTUZUMAB
  7. TAXOTERE [Suspect]
     Active Substance: DOCETAXEL
     Dosage: 161 MG, Q3W
     Route: 042
     Dates: start: 20160120, end: 20160120
  8. VITAMIN D [COLECALCIFEROL] [Concomitant]
     Dosage: UNK
     Dates: start: 20020101

REACTIONS (4)
  - Emotional distress [Unknown]
  - Psychological trauma [Unknown]
  - Alopecia [Not Recovered/Not Resolved]
  - Anxiety [Unknown]

NARRATIVE: CASE EVENT DATE: 201607
